FAERS Safety Report 9347336 (Version 1)
Quarter: 2013Q2

REPORT INFORMATION
  Report Type: Spontaneous
  Country: US (occurrence: US)
  Receive Date: 20130613
  Receipt Date: 20130613
  Transmission Date: 20140414
  Serious: Yes (Other)
  Sender: FDA-Public Use
  Company Number: US-PFIZER INC-2013175935

PATIENT
  Age: 61 Year
  Sex: Female
  Weight: 74.83 kg

DRUGS (4)
  1. SERTRALINE HCL [Suspect]
     Dosage: UNK
  2. DEPAKOTE [Concomitant]
     Dosage: 500 MG, UNK
  3. LEVETIRACETAM [Concomitant]
     Indication: CONVULSION
     Dosage: 1000 MG, UNK
  4. ZOLOFT [Concomitant]
     Indication: DEPRESSION
     Dosage: 50MG ORAL TABLET ONCE IN NIGHT AND 25MG IN MORNING BY CUTTING 50MG INTO HALF
     Route: 048
     Dates: start: 1996

REACTIONS (4)
  - Suicidal behaviour [Unknown]
  - Depression [Unknown]
  - Emotional disorder [Unknown]
  - Drug ineffective [Unknown]
